FAERS Safety Report 20077107 (Version 1)
Quarter: 2021Q4

REPORT INFORMATION
  Report Type: Spontaneous
  Country: US (occurrence: None)
  Receive Date: 20211116
  Receipt Date: 20211116
  Transmission Date: 20220303
  Serious: Yes (Hospitalization)
  Sender: FDA-Public Use
  Company Number: None

PATIENT
  Sex: Female

DRUGS (9)
  1. ORENCIA [Suspect]
     Active Substance: ABATACEPT
     Indication: Rheumatoid arthritis
     Dosage: OTHER FREQUENCY : Q7DAYS;?
     Route: 048
     Dates: start: 20210730, end: 20211115
  2. CELEBREX [Concomitant]
     Active Substance: CELECOXIB
  3. DILTIAZEM [Concomitant]
     Active Substance: DILTIAZEM
  4. MULTI-VITAMIN [Concomitant]
     Active Substance: .ALPHA.-TOCOPHEROL ACETATE, DL-\ASCORBIC ACID\CYANOCOBALAMIN\FLUORIDE ION\FOLIC ACID\NIACIN\PYRIDOXI
  5. NEURONTIN [Concomitant]
     Active Substance: GABAPENTIN
  6. NEXIUM [Concomitant]
     Active Substance: ESOMEPRAZOLE MAGNESIUM
  7. PREDNISONE [Concomitant]
     Active Substance: PREDNISONE
  8. RAYOS [Concomitant]
     Active Substance: PREDNISONE
  9. RESTRIL [Concomitant]

REACTIONS (2)
  - COVID-19 [None]
  - Therapy interrupted [None]
